FAERS Safety Report 10983761 (Version 1)
Quarter: 2015Q2

REPORT INFORMATION
  Report Type: Spontaneous
  Country: US (occurrence: None)
  Receive Date: 20150401
  Receipt Date: 20150401
  Transmission Date: 20150821
  Serious: Yes (Hospitalization, Other)
  Sender: FDA-Public Use
  Company Number: 001888887A

PATIENT
  Age: 19 Year
  Sex: Female

DRUGS (5)
  1. PROACTIV PLUS MARK FADING [Suspect]
     Active Substance: GLYCOLIC ACID\SALICYLIC ACID
     Indication: ACNE
     Dates: start: 20150227, end: 20150228
  2. PROACTIV PLUS PORE TARGETING TREATMENT [Suspect]
     Active Substance: BENZOYL PEROXIDE
     Indication: ACNE
     Dosage: ONCE DAILY DERMAL
     Route: 061
     Dates: start: 20150227, end: 20150228
  3. PROACTIV PLUS SKIN PURIFYING MASK [Suspect]
     Active Substance: SULFUR
     Indication: ACNE
     Dosage: ONCE DAILY DERMAL
     Dates: start: 20150227, end: 20150228
  4. PROACTIVPLUS SKIN SMOOTHING EXFOLIATOR [Suspect]
     Active Substance: BENZOYL PEROXIDE
     Indication: ACNE
     Dosage: ONCE DAILY DERMAL
     Route: 061
     Dates: start: 20150227, end: 20150228
  5. PROACTIV PLUS COMPLEXION PERFECTING HYDRATOR [Suspect]
     Active Substance: SALICYLIC ACID
     Indication: ACNE
     Dates: start: 20150227, end: 20150228

REACTIONS (2)
  - Maternal exposure during pregnancy [None]
  - Application site burn [None]

NARRATIVE: CASE EVENT DATE: 20150228
